FAERS Safety Report 6706508-8 (Version None)
Quarter: 2010Q2

REPORT INFORMATION
  Report Type: 
  Country: None (occurrence: None)
  Receive Date: 20100503
  Receipt Date: 20100427
  Transmission Date: 20101027
  Serious: Yes (Life-Threatening, Other)
  Sender: FDA-Public Use
  Company Number: PHHY2010GB19869

PATIENT
  Sex: Female
  Weight: 70 kg

DRUGS (7)
  1. CLOZARIL [Suspect]
     Indication: SCHIZOPHRENIA
     Dosage: 100 MG, QD
     Dates: start: 19991004
  2. CLOZARIL [Suspect]
     Dosage: 50 MG, BID
     Dates: start: 20100319, end: 20100331
  3. CLOZARIL [Suspect]
     Dosage: 50 MG, BID
     Dates: start: 20100405
  4. DEPAKOTE [Concomitant]
     Indication: MANIA
     Dosage: 750 MG DAILY
     Route: 048
  5. TRAZODONE HCL [Concomitant]
     Indication: DEPRESSION
     Dosage: 250 MG, UNK
     Route: 048
  6. ARIPIPRAZOLE [Concomitant]
  7. AMISULPRIDE [Concomitant]

REACTIONS (3)
  - BLOOD PRESSURE INCREASED [None]
  - ELECTROCARDIOGRAM QT PROLONGED [None]
  - MENTAL DISORDER [None]
